FAERS Safety Report 8184713-4 (Version None)
Quarter: 2012Q1

REPORT INFORMATION
  Report Type: 
  Country: None (occurrence: None)
  Receive Date: 20120305
  Receipt Date: 20120305
  Transmission Date: 20120608
  Serious: No
  Sender: FDA-Public Use
  Company Number: None

PATIENT
  Age: 26 Year
  Sex: Female

DRUGS (2)
  1. MICONAZOLE [Suspect]
     Indication: FUNGAL INFECTION
     Dosage: 1200MG
     Route: 067
     Dates: start: 20120227, end: 20120302
  2. MICONAZOLE [Concomitant]
     Dosage: SMALL AMOUNT 2 TIMES PER DAY
     Route: 067

REACTIONS (4)
  - GENITAL SWELLING [None]
  - INSOMNIA [None]
  - GAIT DISTURBANCE [None]
  - APPLICATION SITE PAIN [None]
